FAERS Safety Report 7790003-1 (Version None)
Quarter: 2011Q3

REPORT INFORMATION
  Report Type: 
  Country: None (occurrence: None)
  Receive Date: 20110930
  Receipt Date: 20101206
  Transmission Date: 20111222
  Serious: Yes (Other)
  Sender: FDA-Public Use
  Company Number: US-ASTRAZENECA-2010SE57607

PATIENT
  Age: 64 Year
  Sex: Female
  Weight: 100 kg

DRUGS (4)
  1. AROMASIN [Suspect]
     Indication: BREAST CANCER
     Route: 048
     Dates: start: 20060901
  2. VITAMIN D [Concomitant]
     Dosage: 500 MG TWICE DAILY
  3. ARIMIDEX [Suspect]
     Indication: BREAST CANCER
     Route: 048
  4. CALCIUM CARBONATE [Concomitant]
     Dosage: 600 MG TWICE DAILY

REACTIONS (2)
  - BONE DENSITY DECREASED [None]
  - ARTHRALGIA [None]
